FAERS Safety Report 4733162-7 (Version None)
Quarter: 2005Q3

REPORT INFORMATION
  Report Type: 
  Country: None (occurrence: None)
  Receive Date: 20050802
  Receipt Date: 20050715
  Transmission Date: 20060218
  Serious: Yes (Hospitalization)
  Sender: FDA-Public Use
  Company Number: DSA_26792_2005

PATIENT
  Age: 76 Year
  Sex: Male

DRUGS (3)
  1. NIFEDIPINE [Suspect]
     Indication: HYPERTENSION
     Dosage: DF
     Dates: start: 20020101
  2. IMATINIB [Suspect]
     Indication: CHRONIC MYELOID LEUKAEMIA
     Dosage: 400 MG
     Dates: start: 20040301
  3. IMATINIB [Suspect]
     Indication: CHRONIC MYELOID LEUKAEMIA
     Dosage: 200 MG

REACTIONS (9)
  - ABDOMINAL PAIN [None]
  - BLOOD ALKALINE PHOSPHATASE INCREASED [None]
  - CHOLELITHIASIS [None]
  - CHROMOSOME ANALYSIS ABNORMAL [None]
  - CHRONIC MYELOID LEUKAEMIA [None]
  - DRUG INTERACTION [None]
  - LEUKOCYTOSIS [None]
  - NAUSEA [None]
  - VOMITING [None]
